FAERS Safety Report 8273032 (Version 5)
Quarter: 2012Q4

REPORT INFORMATION
  Report Type: 
  Country: US (occurrence: US)
  Receive Date: 20111202
  Receipt Date: 20121019
  Transmission Date: 20130627
  Serious: Yes (Hospitalization, Other)
  Sender: FDA-Public Use
  Company Number: US-MSD-1112USA00009

PATIENT

DRUGS (4)
  1. FOSAMAX [Suspect]
     Indication: OSTEOPOROSIS
     Dosage: 70 mg, qw
     Route: 048
     Dates: start: 20020311, end: 20070703
  2. FOSAMAX [Suspect]
     Indication: OSTEOPOROSIS
     Dosage: 70 mg, qw
     Route: 048
     Dates: start: 20080825, end: 20100412
  3. FOSAMAX [Suspect]
     Dosage: 70 mg, qw
     Route: 048
     Dates: start: 20100918, end: 20110916
  4. FOSAMAX [Suspect]
     Indication: OSTEOPOROSIS
     Dosage: 70 mg, qw
     Route: 048
     Dates: start: 20100626, end: 20110510

REACTIONS (42)
  - Femur fracture [Unknown]
  - Hip fracture [Unknown]
  - Pulmonary embolism [Unknown]
  - Chronic lymphocytic leukaemia [Unknown]
  - Electrocardiogram abnormal [Unknown]
  - Open reduction of fracture [Unknown]
  - Cataract operation [Unknown]
  - Hip arthroplasty [Unknown]
  - Tonsillectomy [Unknown]
  - Adenoidectomy [Unknown]
  - B-cell small lymphocytic lymphoma [Unknown]
  - Renal failure [Unknown]
  - Blood cholesterol increased [Unknown]
  - Neuralgia [Unknown]
  - Spinal column stenosis [Unknown]
  - Spinal osteoarthritis [Unknown]
  - Osteopenia [Unknown]
  - Excoriation [Unknown]
  - Retroperitoneal mass [Unknown]
  - Hepatic calcification [Unknown]
  - Splenic calcification [Unknown]
  - Renal cyst [Unknown]
  - Lipoma [Unknown]
  - Aortic arteriosclerosis [Unknown]
  - Lymphadenopathy [Unknown]
  - Diverticulum [Unknown]
  - Osteoarthritis [Unknown]
  - Weight decreased [Unknown]
  - Decreased appetite [Unknown]
  - Fatigue [Unknown]
  - Renal artery stenosis [Unknown]
  - Renal artery occlusion [Unknown]
  - Upper respiratory tract infection [Unknown]
  - Pollakiuria [Unknown]
  - Osteosclerosis [Unknown]
  - Lymphocytic infiltration [Unknown]
  - Stress urinary incontinence [Unknown]
  - Tuberculin test positive [Unknown]
  - Asthenia [Unknown]
  - Back pain [Unknown]
  - Dyspepsia [Unknown]
  - Gastrooesophageal reflux disease [Unknown]
